APPROVED DRUG PRODUCT: ESMOLOL HYDROCHLORIDE
Active Ingredient: ESMOLOL HYDROCHLORIDE
Strength: 10MG/ML
Dosage Form/Route: INJECTABLE;INJECTION
Application: A205520 | Product #001 | TE Code: AP
Applicant: EUGIA PHARMA SPECIALITIES LTD
Approved: Jul 23, 2015 | RLD: No | RS: No | Type: RX